FAERS Safety Report 6925314-2 (Version None)
Quarter: 2010Q3

REPORT INFORMATION
  Report Type: 
  Country: None (occurrence: None)
  Receive Date: 20100810
  Receipt Date: 20100729
  Transmission Date: 20110219
  Serious: No
  Sender: FDA-Public Use
  Company Number: 010575

PATIENT
  Age: 77 Year
  Sex: Female
  Weight: 35.5 kg

DRUGS (10)
  1. PLETAL [Suspect]
     Indication: ARTERIAL OCCLUSIVE DISEASE
     Dosage: 50 MG, BID ORAL
     Route: 048
     Dates: start: 20090201, end: 20100629
  2. KINEDAK (EPALRESTA) TABLET [Suspect]
     Indication: NEUROPATHY PERIPHERAL
     Dosage: 50 MG, TID ORAL
     Route: 048
     Dates: start: 20091101, end: 20100618
  3. ADALAT-CR (NIFEDIPINE) TABLET [Concomitant]
  4. PARIET (SODIUM RABEPRAZOLE) TABLET [Concomitant]
  5. DIOVAN [Concomitant]
  6. ASPIRIN [Concomitant]
  7. SIGMART (NICORANDIL) [Concomitant]
  8. METHYCOBAL (MECOBALAMIN) [Concomitant]
  9. NOVORAPID (INSULIN ASPART(GENETICAL RECOMBINATION)) INJECTION [Concomitant]
  10. LANTUS (INSULIN GLARGINE(GENETICAL RECOMBINATION)) INJECTION [Concomitant]

REACTIONS (4)
  - EOSINOPHIL COUNT INCREASED [None]
  - GRANULOCYTE COUNT DECREASED [None]
  - MYELODYSPLASTIC SYNDROME [None]
  - PLATELET COUNT DECREASED [None]
